FAERS Safety Report 10162179 (Version 1)
Quarter: 2014Q2

REPORT INFORMATION
  Report Type: Spontaneous
  Country: US (occurrence: None)
  Receive Date: 20140508
  Receipt Date: 20140508
  Transmission Date: 20141212
  Serious: Yes (Hospitalization)
  Sender: FDA-Public Use
  Company Number: None

PATIENT
  Age: 59 Year
  Sex: Male
  Weight: 93.5 kg

DRUGS (4)
  1. HYDRALAZINE [Suspect]
     Indication: CARDIAC FAILURE CONGESTIVE
     Route: 048
     Dates: start: 20140422, end: 20140425
  2. HYDRALAZINE [Suspect]
     Indication: HYPERTENSION
     Route: 048
     Dates: start: 20140422, end: 20140425
  3. ISOSORBIDE MONONITRATE [Suspect]
     Indication: CARDIAC FAILURE CONGESTIVE
     Route: 048
     Dates: start: 20140422, end: 20140425
  4. ISOSORBIDE MONONITRATE [Suspect]
     Indication: HYPERTENSION
     Route: 048
     Dates: start: 20140422, end: 20140425

REACTIONS (4)
  - Vision blurred [None]
  - Headache [None]
  - Dyspnoea [None]
  - Syncope [None]
